FAERS Safety Report 6852692-5 (Version None)
Quarter: 2010Q3

REPORT INFORMATION
  Report Type: 
  Country: None (occurrence: None)
  Receive Date: 20100717
  Receipt Date: 20071117
  Transmission Date: 20110219
  Serious: No
  Sender: FDA-Public Use
  Company Number: US-PFIZER INC-2007099547

PATIENT
  Sex: Female
  Weight: 63.181 kg

DRUGS (6)
  1. CHANTIX [Suspect]
     Indication: SMOKING CESSATION THERAPY
     Dates: start: 20071107
  2. DOXYCYCLINE [Suspect]
     Indication: BRONCHITIS
     Dates: start: 20071101, end: 20071116
  3. METOPROLOL [Concomitant]
  4. SIMVASTATIN [Concomitant]
  5. ACTONEL [Concomitant]
  6. ACETYLSALICYLIC ACID [Concomitant]

REACTIONS (3)
  - ACNE [None]
  - PALPITATIONS [None]
  - PRURITUS [None]
